FAERS Safety Report 18629270 (Version 3)
Quarter: 2021Q1

REPORT INFORMATION
  Report Type: Spontaneous
  Country: US (occurrence: US)
  Receive Date: 20201217
  Receipt Date: 20210319
  Transmission Date: 20210419
  Serious: Yes (Disabling, Other)
  Sender: FDA-Public Use
  Company Number: US-PURDUE-USA-2020-0165700

PATIENT
  Age: 52 Year
  Sex: Male

DRUGS (8)
  1. OXYCONTIN [Suspect]
     Active Substance: OXYCODONE HYDROCHLORIDE
     Indication: PRODUCT USED FOR UNKNOWN INDICATION
     Dosage: 10 MG, TID
     Route: 048
  2. HYDROCODONE BITARTRATE AND ACETAMINOPHEN [Suspect]
     Active Substance: ACETAMINOPHEN\HYDROCODONE BITARTRATE
     Indication: BACK PAIN
     Dosage: 335 MG, UNK
     Route: 048
  3. OXYCODONE/ ACETAMINOPHEN TABLETS [Suspect]
     Active Substance: ACETAMINOPHEN\OXYCODONE HYDROCHLORIDE
     Indication: BACK PAIN
     Dosage: 330 MG, HS
     Route: 048
  4. TRAMADOL CR TABLETS (RHODES 21?745) [Suspect]
     Active Substance: TRAMADOL
     Indication: PRODUCT USED FOR UNKNOWN INDICATION
     Dosage: 50 MG, Q4H
     Route: 048
  5. OXYCODONE HYDROCHLORIDE (SIMILAR TO NDA 22?272) [Suspect]
     Active Substance: OXYCODONE HYDROCHLORIDE
  6. OXYCODONE/ ACETAMINOPHEN TABLETS [Suspect]
     Active Substance: ACETAMINOPHEN\OXYCODONE HYDROCHLORIDE
     Dosage: 335 MG, HS
     Route: 048
  7. OXYCODONE HCL TABLETS (RHODES 91?490) [Suspect]
     Active Substance: OXYCODONE HYDROCHLORIDE
     Dosage: 10 MG, Q6H
     Route: 048
  8. OXYCODONE HCL TABLETS (RHODES 91?490) [Suspect]
     Active Substance: OXYCODONE HYDROCHLORIDE
     Indication: PRODUCT USED FOR UNKNOWN INDICATION
     Dosage: 10 MG, TID
     Route: 048

REACTIONS (47)
  - Hydronephrosis [Unknown]
  - Overdose [Unknown]
  - Spondylolisthesis [Unknown]
  - Sensory loss [Unknown]
  - Post laminectomy syndrome [Unknown]
  - Diarrhoea [Unknown]
  - Renal cyst [Unknown]
  - Restless legs syndrome [Unknown]
  - Anxiety [Unknown]
  - Ureteric repair [Unknown]
  - Sepsis [Unknown]
  - Joint swelling [Unknown]
  - Dizziness [Unknown]
  - Disability [Unknown]
  - Facial paralysis [Unknown]
  - Neuropathic muscular atrophy [Unknown]
  - Drug dependence [Unknown]
  - Back pain [Unknown]
  - Muscle spasms [Unknown]
  - Adjustment disorder with anxiety [Unknown]
  - Peroneal nerve palsy [Unknown]
  - Renal failure [Unknown]
  - Renal surgery [Unknown]
  - Fatigue [Unknown]
  - Pain [Unknown]
  - Osteoarthritis [Unknown]
  - Cervical radiculopathy [Unknown]
  - Abdominal pain upper [Unknown]
  - Paraesthesia [Unknown]
  - Muscular weakness [Unknown]
  - Sciatica [Unknown]
  - Pelvi-ureteric obstruction [Unknown]
  - Polyneuropathy [Unknown]
  - Insomnia [Unknown]
  - Hypoaesthesia [Unknown]
  - Ageusia [Unknown]
  - Intervertebral disc protrusion [Unknown]
  - Skin discolouration [Unknown]
  - Hypertension [Unknown]
  - Essential hypertension [Unknown]
  - Lagophthalmos [Unknown]
  - Vertebral foraminal stenosis [Unknown]
  - Intervertebral disc degeneration [Unknown]
  - Neck pain [Unknown]
  - Obesity [Unknown]
  - Disorientation [Unknown]
  - Depression [None]

NARRATIVE: CASE EVENT DATE: 20140805
